FAERS Safety Report 4955658-5 (Version None)
Quarter: 2006Q1

REPORT INFORMATION
  Report Type: 
  Country: None (occurrence: None)
  Receive Date: 20060127
  Receipt Date: 20051012
  Transmission Date: 20060701
  Serious: Yes (Death)
  Sender: FDA-Public Use
  Company Number: 2005-US-00578

PATIENT
  Age: 35 Year
  Sex: Male

DRUGS (1)
  1. CLOZAPINE [Suspect]
     Indication: BIPOLAR DISORDER
     Dosage: ORAL
     Route: 048
     Dates: start: 20050401, end: 20050901

REACTIONS (1)
  - SURGERY [None]
